FAERS Safety Report 4614350-7 (Version None)
Quarter: 2005Q2

REPORT INFORMATION
  Report Type: 
  Country: None (occurrence: None)
  Receive Date: 20050308
  Receipt Date: 20041108
  Transmission Date: 20051028
  Serious: Yes (Other)
  Sender: FDA-Public Use
  Company Number: 2004UW23045

PATIENT
  Age: 72 Year
  Weight: 97.52 kg

DRUGS (6)
  1. CRESTOR [Suspect]
     Indication: BLOOD CHOLESTEROL INCREASED
     Dosage: 5 MG PO
     Route: 048
     Dates: start: 20041001, end: 20041106
  2. ZOCOR [Concomitant]
  3. ALLOPURINOL [Concomitant]
  4. COLCHICINE [Concomitant]
  5. ATENOLOL [Concomitant]
  6. OMEPRAZOLE [Concomitant]

REACTIONS (2)
  - ARTHRALGIA [None]
  - JOINT STIFFNESS [None]
